FAERS Safety Report 21241499 (Version 1)
Quarter: 2022Q3

REPORT INFORMATION
  Report Type: Spontaneous
  Country: KR (occurrence: KR)
  Receive Date: 20220823
  Receipt Date: 20220823
  Transmission Date: 20221027
  Serious: Yes (Hospitalization, Other)
  Sender: FDA-Public Use
  Company Number: KR-SUN PHARMACEUTICAL INDUSTRIES LTD-2022RR-349607

PATIENT
  Age: 27 Year
  Sex: Male

DRUGS (1)
  1. ASPIRIN [Suspect]
     Active Substance: ASPIRIN
     Indication: Product used for unknown indication
     Dosage: 100 DOSAGE FORM OF 100 MG
     Route: 048

REACTIONS (9)
  - Suicide attempt [Unknown]
  - Toxicity to various agents [Unknown]
  - Vomiting [Unknown]
  - Nausea [Unknown]
  - Abdominal discomfort [Unknown]
  - Deafness bilateral [Recovered/Resolved]
  - Nystagmus [Recovered/Resolved]
  - Dizziness [Unknown]
  - Tinnitus [Unknown]
